FAERS Safety Report 10183258 (Version 1)
Quarter: 2014Q2

REPORT INFORMATION
  Report Type: Spontaneous
  Country: US (occurrence: US)
  Receive Date: 20140520
  Receipt Date: 20140520
  Transmission Date: 20141212
  Serious: No
  Sender: FDA-Public Use
  Company Number: US-PFIZER INC-2014136817

PATIENT
  Age: 63 Year
  Sex: Female
  Weight: 58.96 kg

DRUGS (6)
  1. XANAX [Suspect]
     Indication: INSOMNIA
     Dosage: 1 MG, AS NEEDED
     Route: 048
  2. XANAX [Suspect]
     Indication: PANIC ATTACK
  3. XANAX [Suspect]
     Indication: ANXIETY
  4. LISINOPRIL [Concomitant]
     Indication: HYPERTENSION
     Dosage: UNK,DAILY
  5. ACYCLOVIR [Concomitant]
     Indication: ORAL HERPES
     Dosage: UNK, 2X/DAY
  6. LIPITOR [Concomitant]
     Indication: BLOOD CHOLESTEROL ABNORMAL
     Dosage: 10 MG, DAILY

REACTIONS (4)
  - Hypothyroidism [Unknown]
  - Blood urea increased [Unknown]
  - Headache [Unknown]
  - Sleep disorder [Unknown]
